FAERS Safety Report 5189513-5 (Version None)
Quarter: 2006Q4

REPORT INFORMATION
  Report Type: 
  Country: None (occurrence: None)
  Receive Date: 20061221
  Receipt Date: 20060707
  Transmission Date: 20070319
  Serious: No
  Sender: FDA-Public Use
  Company Number: US-AMGEN-KDL185664

PATIENT
  Sex: Female

DRUGS (2)
  1. ENBREL [Suspect]
     Indication: RHEUMATOID ARTHRITIS
     Route: 058
     Dates: start: 20050901
  2. METHOTREXATE [Concomitant]
     Route: 048
     Dates: start: 20010601

REACTIONS (6)
  - ARTHROPOD BITE [None]
  - HEADACHE [None]
  - IMPAIRED HEALING [None]
  - INJECTION SITE REACTION [None]
  - SCAR [None]
  - SKIN LACERATION [None]
